FAERS Safety Report 9831977 (Version 2)
Quarter: 2014Q1

REPORT INFORMATION
  Report Type: Spontaneous
  Country: US (occurrence: US)
  Receive Date: 20140121
  Receipt Date: 20140121
  Transmission Date: 20141002
  Serious: Yes (Death, Other)
  Sender: FDA-Public Use
  Company Number: US-SA-HECT-1000131

PATIENT
  Age: 68 Year
  Sex: Female

DRUGS (2)
  1. HECTOROL [Suspect]
     Indication: HYPERPARATHYROIDISM SECONDARY
     Dosage: UNK
     Route: 042
     Dates: start: 20110304, end: 20110304
  2. TYLENOL [Concomitant]
     Indication: HEADACHE
     Dates: start: 20110304, end: 20110304

REACTIONS (9)
  - Cardiac arrest [Fatal]
  - Brain hypoxia [Fatal]
  - Respiratory arrest [Fatal]
  - Anaphylactic reaction [Unknown]
  - Local swelling [Unknown]
  - Throat tightness [Unknown]
  - Loss of consciousness [Unknown]
  - Loss of consciousness [Unknown]
  - Feeling abnormal [Unknown]
